FAERS Safety Report 25075233 (Version 1)
Quarter: 2025Q1

REPORT INFORMATION
  Report Type: Spontaneous
  Country: US (occurrence: US)
  Receive Date: 20250313
  Receipt Date: 20250313
  Transmission Date: 20250408
  Serious: No
  Sender: IPSEN BIOPHARMACEUTICALS, INC.
  Company Number: US-IPSEN Group, Research and Development-2025-05451

PATIENT
  Age: 65 Year
  Sex: Female
  Weight: 57.37 kg

DRUGS (11)
  1. IQIRVO [Suspect]
     Active Substance: ELAFIBRANOR
     Indication: Primary biliary cholangitis
     Dosage: 80 MG DAILY EVERY MORNING
     Route: 048
     Dates: start: 20250301
  2. TRETINOIN [Concomitant]
     Active Substance: TRETINOIN
  3. HYDROQUINONE [Concomitant]
     Active Substance: HYDROQUINONE
  4. IRON [Concomitant]
     Active Substance: IRON
  5. VITAMIN D-400 [Concomitant]
  6. CALCIUM [Concomitant]
     Active Substance: CALCIUM
  7. ALBUTEROL SULFATE [Concomitant]
     Active Substance: ALBUTEROL SULFATE
  8. IPRATROPIUM BROMIDE [Concomitant]
     Active Substance: IPRATROPIUM BROMIDE
  9. SYMBICORT [Concomitant]
     Active Substance: BUDESONIDE\FORMOTEROL FUMARATE DIHYDRATE
  10. URSODIOL [Concomitant]
     Active Substance: URSODIOL
  11. HYDROXYCHLOROQUINE SULFATE [Concomitant]
     Active Substance: HYDROXYCHLOROQUINE SULFATE

REACTIONS (2)
  - Fatigue [Unknown]
  - Chromaturia [Unknown]

NARRATIVE: CASE EVENT DATE: 20250301
